FAERS Safety Report 4622835-2 (Version None)
Quarter: 2005Q1

REPORT INFORMATION
  Report Type: 
  Country: None (occurrence: None)
  Receive Date: 20050330
  Receipt Date: 20040819
  Transmission Date: 20050727
  Serious: Yes (Hospitalization)
  Sender: FDA-Public Use
  Company Number: US-GLAXOSMITHKLINE-A0523750A

PATIENT
  Age: 23 Year
  Sex: Female

DRUGS (4)
  1. PAXIL [Suspect]
     Indication: SOCIAL PHOBIA
     Dosage: 30TAB SINGLE DOSE
     Route: 048
     Dates: start: 20030929, end: 20040106
  2. DOXYCLINE [Concomitant]
  3. BIRTH CONTROL PILLS [Concomitant]
  4. DIPROLENE [Concomitant]

REACTIONS (10)
  - ABDOMINAL PAIN [None]
  - CHEST PAIN [None]
  - CONVULSION [None]
  - DISABILITY [None]
  - DISSOCIATION [None]
  - HEADACHE [None]
  - MUSCLE TWITCHING [None]
  - OVERDOSE [None]
  - SUICIDAL IDEATION [None]
  - SUICIDE ATTEMPT [None]
